FAERS Safety Report 13570173 (Version 1)
Quarter: 2017Q2

REPORT INFORMATION
  Report Type: Report from Study
  Country: US (occurrence: US)
  Receive Date: 20170522
  Receipt Date: 20170522
  Transmission Date: 20170830
  Serious: Yes (Hospitalization)
  Sender: FDA-Public Use
  Company Number: US-VIFOR (INTERNATIONAL) INC.-VIT-2017-05441

PATIENT
  Age: 52 Year
  Sex: Female

DRUGS (23)
  1. NIFEDIPINE. [Concomitant]
     Active Substance: NIFEDIPINE
  2. RENVELA [Concomitant]
     Active Substance: SEVELAMER CARBONATE
  3. LANTUS [Concomitant]
     Active Substance: INSULIN GLARGINE
  4. ULORIC [Concomitant]
     Active Substance: FEBUXOSTAT
  5. NEXIUM [Concomitant]
     Active Substance: ESOMEPRAZOLE MAGNESIUM
  6. VENTOLIN HFA AER [Concomitant]
  7. GABAPENTIN. [Concomitant]
     Active Substance: GABAPENTIN
  8. PROCRIT [Concomitant]
     Active Substance: ERYTHROPOIETIN
  9. LIDOCAINE. [Concomitant]
     Active Substance: LIDOCAINE
  10. MACROGOL [Concomitant]
     Active Substance: POLYETHYLENE GLYCOLS
     Dosage: 3350 NF
  11. VELTASSA [Suspect]
     Active Substance: PATIROMER
     Indication: HYPERKALAEMIA
     Route: 048
     Dates: start: 20170201, end: 20170515
  12. CRESTOR [Concomitant]
     Active Substance: ROSUVASTATIN CALCIUM
  13. LEVEMIR [Concomitant]
     Active Substance: INSULIN DETEMIR
  14. AMITRIPTYLINE [Concomitant]
     Active Substance: AMITRIPTYLINE
  15. EXJADE [Concomitant]
     Active Substance: DEFERASIROX
  16. CLONAZEPAM. [Concomitant]
     Active Substance: CLONAZEPAM
  17. METOPROLOL TARTRATE. [Concomitant]
     Active Substance: METOPROLOL TARTRATE
  18. PREDNISONE. [Concomitant]
     Active Substance: PREDNISONE
  19. CLOPIDOGREL [Concomitant]
     Active Substance: CLOPIDOGREL BISULFATE
  20. METRONIDAZOLE. [Concomitant]
     Active Substance: METRONIDAZOLE
  21. DIOVAN [Concomitant]
     Active Substance: VALSARTAN
  22. HYDROCO/APAP [Concomitant]
     Active Substance: ACETAMINOPHEN\HYDROCODONE
     Dosage: 10-325
  23. METHOCARBAMOL. [Concomitant]
     Active Substance: METHOCARBAMOL

REACTIONS (2)
  - Gastric infection [Recovered/Resolved]
  - Drug dose omission [Unknown]

NARRATIVE: CASE EVENT DATE: 201705
